FAERS Safety Report 19731800 (Version 3)
Quarter: 2021Q3

REPORT INFORMATION
  Report Type: Report from Study
  Country: EG (occurrence: EG)
  Receive Date: 20210820
  Receipt Date: 20210921
  Transmission Date: 20211014
  Serious: Yes (Hospitalization, Other)
  Sender: FDA-Public Use
  Company Number: NVSC2021EG185083

PATIENT
  Age: 18 Year
  Sex: Male

DRUGS (1)
  1. GILENYA [Suspect]
     Active Substance: FINGOLIMOD HYDROCHLORIDE
     Indication: MULTIPLE SCLEROSIS
     Dosage: 0.5 MG, BIW
     Route: 065
     Dates: start: 20201224

REACTIONS (11)
  - Visual impairment [Recovering/Resolving]
  - Off label use [Unknown]
  - White blood cell count decreased [Unknown]
  - Muscular weakness [Not Recovered/Not Resolved]
  - Decreased immune responsiveness [Recovering/Resolving]
  - Hepatic enzyme increased [Unknown]
  - Hemiplegia [Not Recovered/Not Resolved]
  - Multiple sclerosis [Not Recovered/Not Resolved]
  - Movement disorder [Not Recovered/Not Resolved]
  - Fatigue [Not Recovered/Not Resolved]
  - Osteoporosis [Recovering/Resolving]

NARRATIVE: CASE EVENT DATE: 20201224
